FAERS Safety Report 14419976 (Version 6)
Quarter: 2018Q1

REPORT INFORMATION
  Report Type: Report from Study
  Country: KR (occurrence: KR)
  Receive Date: 20180122
  Receipt Date: 20180323
  Transmission Date: 20180509
  Serious: Yes (Death, Hospitalization, Other)
  Sender: FDA-Public Use
  Company Number: KR-EISAI MEDICAL RESEARCH-EC-2017-034464

PATIENT
  Age: 57 Year
  Sex: Male
  Weight: 53 kg

DRUGS (9)
  1. LENVATINIB [Suspect]
     Active Substance: LENVATINIB
     Dosage: BLINDED DOSE
     Route: 048
     Dates: start: 20180118, end: 20180207
  2. TACOPEN [Concomitant]
  3. EVEROLIMUS. [Suspect]
     Active Substance: EVEROLIMUS
     Route: 048
     Dates: start: 20180118, end: 20180207
  4. SYLCON [Concomitant]
     Active Substance: CALCIUM POLYCARBOPHIL
  5. LENVATINIB [Suspect]
     Active Substance: LENVATINIB
     Indication: RENAL CELL CARCINOMA
     Dosage: BLINDED DOSE
     Route: 048
     Dates: start: 20171228, end: 20180116
  6. DUROGESIC PATCH [Concomitant]
  7. ENCOVER [Concomitant]
  8. EVEROLIMUS. [Suspect]
     Active Substance: EVEROLIMUS
     Indication: RENAL CELL CARCINOMA
     Route: 048
     Dates: start: 20171228, end: 20180116
  9. MAGMIL [Concomitant]
     Active Substance: MAGNESIUM HYDROXIDE

REACTIONS (3)
  - Malignant neoplasm progression [Fatal]
  - Diarrhoea [Recovered/Resolved]
  - Enterocolitis [Recovered/Resolved]

NARRATIVE: CASE EVENT DATE: 20180115
